FAERS Safety Report 5243680-3 (Version None)
Quarter: 2007Q1

REPORT INFORMATION
  Report Type: 
  Country: None (occurrence: None)
  Receive Date: 20070220
  Receipt Date: 20070220
  Transmission Date: 20070707
  Serious: No
  Sender: FDA-Public Use
  Company Number: None

PATIENT
  Age: 54 Year
  Sex: Male
  Weight: 130.5 kg

DRUGS (1)
  1. IBUPROFEN [Suspect]
     Indication: PAIN
     Dosage: 600 MG TID PO
     Route: 048

REACTIONS (6)
  - CHEST PAIN [None]
  - DYSPHAGIA [None]
  - EPIGASTRIC DISCOMFORT [None]
  - GASTROOESOPHAGEAL REFLUX DISEASE [None]
  - NAUSEA [None]
  - VOMITING [None]
